FAERS Safety Report 18030515 (Version 2)
Quarter: 2020Q3

REPORT INFORMATION
  Report Type: Report from Study
  Country: US (occurrence: US)
  Receive Date: 20200715
  Receipt Date: 20200804
  Transmission Date: 20201103
  Serious: Yes (Hospitalization, Other)
  Sender: FDA-Public Use
  Company Number: US-ACTELION-A-US2018-168597

PATIENT
  Age: 65 Year
  Sex: Female
  Weight: 63.49 kg

DRUGS (1)
  1. OPSUMIT [Suspect]
     Active Substance: MACITENTAN
     Indication: PULMONARY ARTERIAL HYPERTENSION
     Dosage: 10 MG, QD
     Route: 048
     Dates: start: 20170914

REACTIONS (26)
  - Accident [Unknown]
  - Deafness neurosensory [Recovered/Resolved]
  - Feeling cold [Unknown]
  - Fall [Unknown]
  - Eye irritation [Unknown]
  - Gait disturbance [Unknown]
  - Acute kidney injury [Recovered/Resolved]
  - Ocular hyperaemia [Unknown]
  - Condition aggravated [Unknown]
  - Viral infection [Recovered/Resolved]
  - Diarrhoea [Recovered/Resolved]
  - Headache [Recovered/Resolved]
  - Spinal fracture [Unknown]
  - Chills [Unknown]
  - Asthenia [Unknown]
  - Cochlea implant [Recovered/Resolved]
  - Pyrexia [Recovered/Resolved]
  - Chest pain [Recovered/Resolved]
  - Abdominal pain [Recovered/Resolved]
  - Ataxia [Recovered/Resolved]
  - Lacrimation increased [Unknown]
  - Unevaluable event [Recovered/Resolved]
  - Vision blurred [Unknown]
  - Nausea [Recovered/Resolved]
  - Cough [Recovered/Resolved]
  - Vomiting [Recovered/Resolved]

NARRATIVE: CASE EVENT DATE: 20180212
